FAERS Safety Report 6696167-5 (Version None)
Quarter: 2010Q2

REPORT INFORMATION
  Report Type: 
  Country: None (occurrence: None)
  Receive Date: 20100426
  Receipt Date: 20090804
  Transmission Date: 20101027
  Serious: No
  Sender: FDA-Public Use
  Company Number: A0800442A

PATIENT
  Age: 47 Year
  Sex: Male

DRUGS (2)
  1. AMERGE [Suspect]
     Indication: MIGRAINE
     Route: 048
     Dates: start: 20090726, end: 20090726
  2. NO CONCURRENT MEDICATION [Concomitant]

REACTIONS (2)
  - RASH [None]
  - RASH PAPULAR [None]
